FAERS Safety Report 5651043-1 (Version None)
Quarter: 2008Q1

REPORT INFORMATION
  Report Type: 
  Country: None (occurrence: None)
  Receive Date: 20080305
  Receipt Date: 20080304
  Transmission Date: 20080703
  Serious: Yes (Other)
  Sender: FDA-Public Use
  Company Number: A0713352A

PATIENT
  Age: 64 Year
  Sex: Male

DRUGS (11)
  1. LAPATINIB [Suspect]
     Indication: NEOPLASM MALIGNANT
     Route: 048
     Dates: start: 20071213
  2. OXYCODONE HCL [Concomitant]
  3. SUCRALFATE [Concomitant]
     Route: 048
  4. METOCLOPRAMIDE [Concomitant]
  5. CHERATUSSIN AC [Concomitant]
  6. ENTECAVIR [Concomitant]
     Dosage: .5MG PER DAY
     Route: 048
  7. ZOLPIDEM [Concomitant]
  8. MOTRIN [Concomitant]
  9. NAPHAZOLINE HCL [Concomitant]
  10. RADIATION [Concomitant]
  11. TYLENOL (CAPLET) [Concomitant]

REACTIONS (1)
  - HEPATIC ENZYME INCREASED [None]
